FAERS Safety Report 9541318 (Version 7)
Quarter: 2014Q1

REPORT INFORMATION
  Report Type: Report from Study
  Country: CA (occurrence: CA)
  Receive Date: 20130923
  Receipt Date: 20140201
  Transmission Date: 20141002
  Serious: Yes (Other)
  Sender: FDA-Public Use
  Company Number: CA-ROCHE-1266649

PATIENT
  Age: 55 Year
  Sex: Male
  Weight: 90.7 kg

DRUGS (10)
  1. ACTEMRA [Suspect]
     Indication: RHEUMATOID ARTHRITIS
     Dosage: HE HAD LAST INFUSION OF TOCILIZUMAB ON 11/SEP/2013??HE RECIEVED THE LAST TOCILIZUMAB INFUSION ON THE
     Route: 042
     Dates: start: 20130813
  2. ACTEMRA [Suspect]
     Indication: UVEITIS
  3. NAPROXEN EC [Suspect]
     Indication: PRODUCT USED FOR UNKNOWN INDICATION
     Route: 065
  4. METHOTREXATE [Concomitant]
  5. LANSOPRAZOLE [Concomitant]
  6. PREDNISOLONE OPHTHALMIC [Concomitant]
     Dosage: RIGHT EYE
     Route: 065
  7. SILDENAFIL [Concomitant]
     Route: 065
  8. RISEDRONATE [Concomitant]
  9. TYLENOL [Concomitant]
  10. IBUPROFEN [Concomitant]

REACTIONS (8)
  - Urinary tract infection [Unknown]
  - Joint effusion [Unknown]
  - Cystoscopy abnormal [Unknown]
  - Pain [Unknown]
  - Inflammation [Recovered/Resolved]
  - Bladder disorder [Unknown]
  - Arthralgia [Unknown]
  - Off label use [Unknown]
